FAERS Safety Report 20254772 (Version 1)
Quarter: 2021Q4

REPORT INFORMATION
  Report Type: Report from Study
  Country: CA (occurrence: None)
  Receive Date: 20211230
  Receipt Date: 20211230
  Transmission Date: 20220303
  Serious: Yes (Other)
  Sender: FDA-Public Use
  Company Number: CA-PFIZER INC-202101835030

PATIENT
  Age: 54 Year
  Sex: Male

DRUGS (3)
  1. METHOTREXATE [Suspect]
     Active Substance: METHOTREXATE
     Indication: Product used for unknown indication
     Route: 065
  2. PLAQUENIL [Concomitant]
     Active Substance: HYDROXYCHLOROQUINE SULFATE
     Route: 048
  3. SULFASALAZINE [Concomitant]
     Active Substance: SULFASALAZINE
     Route: 048

REACTIONS (4)
  - Drug ineffective [Not Recovered/Not Resolved]
  - Rheumatoid arthritis [Not Recovered/Not Resolved]
  - Arthralgia [Not Recovered/Not Resolved]
  - Joint swelling [Not Recovered/Not Resolved]
